FAERS Safety Report 21493741 (Version 9)
Quarter: 2023Q2

REPORT INFORMATION
  Report Type: Report from Study
  Country: US (occurrence: US)
  Receive Date: 20221021
  Receipt Date: 20230425
  Transmission Date: 20230722
  Serious: Yes (Hospitalization, Other)
  Sender: FDA-Public Use
  Company Number: US-BIOVITRUM-2022US11889

PATIENT
  Age: 52 Year
  Sex: Female

DRUGS (3)
  1. KINERET [Suspect]
     Active Substance: ANAKINRA
     Indication: Pericarditis
     Dosage: DAILY
     Route: 058
     Dates: start: 20200829
  2. KINERET [Suspect]
     Active Substance: ANAKINRA
     Dosage: DAILY
     Dates: start: 20200901
  3. KINERET [Suspect]
     Active Substance: ANAKINRA
     Dosage: DAILY
     Route: 058

REACTIONS (7)
  - COVID-19 [Recovered/Resolved]
  - Loss of consciousness [Recovered/Resolved]
  - Intentional product misuse [Unknown]
  - Malaise [Unknown]
  - Chest pain [Unknown]
  - Nasopharyngitis [Unknown]
  - Speech disorder [Unknown]
